FAERS Safety Report 11064122 (Version 2)
Quarter: 2015Q2

REPORT INFORMATION
  Report Type: Report from Study
  Country: US (occurrence: US)
  Receive Date: 20150424
  Receipt Date: 20150519
  Transmission Date: 20150821
  Serious: Yes (Other)
  Sender: FDA-Public Use
  Company Number: US-BRISTOL-MYERS SQUIBB COMPANY-BMS-2015-024718

PATIENT
  Age: 54 Year
  Sex: Male
  Weight: 88 kg

DRUGS (2)
  1. IPILIMUMAB [Suspect]
     Active Substance: IPILIMUMAB
     Indication: MALIGNANT MELANOMA
     Dosage: 880 MG, UNK
     Route: 042
     Dates: start: 20140116, end: 20140227
  2. IPILIMUMAB [Suspect]
     Active Substance: IPILIMUMAB
     Dosage: 880 MG, UNK
     Route: 042
     Dates: end: 20140403

REACTIONS (2)
  - Diarrhoea [Recovered/Resolved]
  - Lipase increased [Recovered/Resolved]

NARRATIVE: CASE EVENT DATE: 20140317
